FAERS Safety Report 9194163 (Version 1)
Quarter: 2013Q1

REPORT INFORMATION
  Report Type: Spontaneous
  Country: US (occurrence: US)
  Receive Date: 20130327
  Receipt Date: 20130327
  Transmission Date: 20140127
  Serious: Yes (Hospitalization)
  Sender: FDA-Public Use
  Company Number: US-GILEAD-2013-0072172

PATIENT
  Age: 39 Year
  Sex: Male

DRUGS (7)
  1. VIREAD [Suspect]
     Indication: HIV INFECTION
  2. EMTRIVA [Suspect]
     Indication: HIV INFECTION
  3. LOPINAVIR W/RITONAVIR [Suspect]
     Indication: HIV INFECTION
  4. AZITHROMYCIN [Suspect]
     Indication: PRODUCT USED FOR UNKNOWN INDICATION
  5. DAPSONE [Concomitant]
     Indication: HIV INFECTION
  6. ETHAMBUTOL [Concomitant]
     Indication: ANTIBIOTIC PROPHYLAXIS
  7. DIVALPROEX [Concomitant]
     Indication: PRODUCT USED FOR UNKNOWN INDICATION

REACTIONS (1)
  - Vanishing bile duct syndrome [Not Recovered/Not Resolved]
